FAERS Safety Report 16836301 (Version 1)
Quarter: 2019Q3

REPORT INFORMATION
  Report Type: Spontaneous
  Country: IT (occurrence: IT)
  Receive Date: 20190921
  Receipt Date: 20190921
  Transmission Date: 20191005
  Serious: Yes (Hospitalization)
  Sender: FDA-Public Use
  Company Number: IT-ACCORD-155379

PATIENT
  Age: 63 Year
  Sex: Female

DRUGS (1)
  1. SERTRALINE [Suspect]
     Active Substance: SERTRALINE HYDROCHLORIDE
     Indication: PRODUCT USED FOR UNKNOWN INDICATION

REACTIONS (3)
  - Acidosis [Unknown]
  - Tremor [Unknown]
  - Tachycardia [Unknown]

NARRATIVE: CASE EVENT DATE: 20190210
